FAERS Safety Report 13725988 (Version 2)
Quarter: 2017Q3

REPORT INFORMATION
  Report Type: Spontaneous
  Country: DE (occurrence: DE)
  Receive Date: 20170707
  Receipt Date: 20170727
  Transmission Date: 20171127
  Serious: Yes (Other)
  Sender: FDA-Public Use
  Company Number: DE-GLAXOSMITHKLINE-DE2017GSK103590

PATIENT
  Age: 59 Year
  Sex: Female
  Weight: 72 kg

DRUGS (1)
  1. NUCALA [Suspect]
     Active Substance: MEPOLIZUMAB
     Indication: PRODUCT USED FOR UNKNOWN INDICATION
     Dosage: 100 MG, Z
     Route: 058
     Dates: start: 201704

REACTIONS (2)
  - Urinary tract infection [Recovering/Resolving]
  - Cystitis haemorrhagic [Recovering/Resolving]

NARRATIVE: CASE EVENT DATE: 20170629
